FAERS Safety Report 18025582 (Version 2)
Quarter: 2021Q2

REPORT INFORMATION
  Report Type: Spontaneous
  Country: US (occurrence: US)
  Receive Date: 20200715
  Receipt Date: 20210525
  Transmission Date: 20210717
  Serious: Yes (Hospitalization, Other)
  Sender: FDA-Public Use
  Company Number: US-GILEAD-2020-0483129

PATIENT
  Age: 56 Year
  Sex: Male
  Weight: 128.8 kg

DRUGS (30)
  1. FLUTICASONE. [Concomitant]
     Active Substance: FLUTICASONE
  2. SIMVASTATIN +PHARMA [Concomitant]
     Active Substance: SIMVASTATIN
  3. ATORVASTATIN [Concomitant]
     Active Substance: ATORVASTATIN
  4. ACETIC ACID. [Concomitant]
     Active Substance: ACETIC ACID
  5. ECONAZOLE NITRATE. [Concomitant]
     Active Substance: ECONAZOLE NITRATE
  6. INSULIN NPH [INSULIN ISOPHANE BOVINE] [Concomitant]
     Active Substance: INSULIN BEEF
  7. METFORMIN [Concomitant]
     Active Substance: METFORMIN HYDROCHLORIDE
  8. MELOXICAM. [Concomitant]
     Active Substance: MELOXICAM
  9. TESTOSTERONE CYPIONATE. [Concomitant]
     Active Substance: TESTOSTERONE CYPIONATE
  10. HYDROCODONE BITARTRATE. [Concomitant]
     Active Substance: HYDROCODONE BITARTRATE
  11. HYDROCHLOROTHIAZIDE. [Concomitant]
     Active Substance: HYDROCHLOROTHIAZIDE
  12. BENADRYL A [Concomitant]
     Active Substance: DIPHENHYDRAMINE HYDROCHLORIDE
  13. CIPRODEX [Concomitant]
     Active Substance: CIPROFLOXACIN HYDROCHLORIDE\DEXAMETHASONE
  14. PREDNISONE. [Concomitant]
     Active Substance: PREDNISONE
  15. NORTRIPTYLINE [Concomitant]
     Active Substance: NORTRIPTYLINE
  16. BUPROPION. [Concomitant]
     Active Substance: BUPROPION
  17. PROAIR HFA [Concomitant]
     Active Substance: ALBUTEROL SULFATE
  18. PROBIOTIC 10 [Concomitant]
     Active Substance: DIETARY SUPPLEMENT\PROBIOTICS
  19. LISINOPRIL. [Concomitant]
     Active Substance: LISINOPRIL
  20. PRINIVIL [Concomitant]
     Active Substance: LISINOPRIL
  21. CITALOPRAM HYDROCHLORIDE [Concomitant]
     Active Substance: CITALOPRAM HYDROCHLORIDE
  22. ASPIRIN 81 [Concomitant]
     Active Substance: ASPIRIN
  23. DICLOXACILLIN [Concomitant]
     Active Substance: DICLOXACILLIN
  24. RANITIDINE. [Concomitant]
     Active Substance: RANITIDINE
  25. NYSTATIN. [Concomitant]
     Active Substance: NYSTATIN
  26. ATRIPLA [Suspect]
     Active Substance: EFAVIRENZ\EMTRICITABINE\TENOFOVIR DISOPROXIL FUMARATE
     Indication: HIV INFECTION
     Dosage: UNK
     Route: 048
     Dates: start: 20101012, end: 20131213
  27. SENNOSIDES. [Concomitant]
     Active Substance: SENNOSIDES
  28. MYLANTA [Concomitant]
     Active Substance: ALUMINUM HYDROXIDE\DIMETHICONE\MAGNESIUM HYDROXIDE
  29. IRBESARTAN. [Concomitant]
     Active Substance: IRBESARTAN
  30. SULFACETAMIDE SODIUM. [Concomitant]
     Active Substance: SULFACETAMIDE SODIUM

REACTIONS (79)
  - Fall [Unknown]
  - Acarodermatitis [Unknown]
  - Back pain [Unknown]
  - Skin abrasion [Recovered/Resolved]
  - Tinnitus [Unknown]
  - Nail dystrophy [Unknown]
  - Hyperkeratosis [Unknown]
  - Left ventricular enlargement [Unknown]
  - Left atrial enlargement [Unknown]
  - Arteriosclerosis [Unknown]
  - Endothelial dysfunction [Unknown]
  - Viral infection [Unknown]
  - Diarrhoea [Unknown]
  - Dermal cyst [Recovering/Resolving]
  - Temporomandibular joint syndrome [Unknown]
  - Urge incontinence [Unknown]
  - Benign prostatic hyperplasia [Unknown]
  - Tooth abscess [Unknown]
  - Paronychia [Recovering/Resolving]
  - Facial paralysis [Recovering/Resolving]
  - Escherichia infection [Recovering/Resolving]
  - Skin infection [Unknown]
  - Pain in extremity [Unknown]
  - Neuroma [Recovering/Resolving]
  - Metatarsalgia [Unknown]
  - Nail dystrophy [Unknown]
  - Gastroenteritis viral [Unknown]
  - Wheezing [Unknown]
  - Peripheral swelling [Unknown]
  - Dehydration [Recovered/Resolved]
  - Lethargy [Unknown]
  - Skin disorder [Recovered/Resolved]
  - Subcutaneous abscess [Recovering/Resolving]
  - Chronic kidney disease [Unknown]
  - Herpes zoster [Unknown]
  - Dizziness [Recovered/Resolved]
  - Osteoarthritis [Unknown]
  - Arthropod bite [Recovering/Resolving]
  - Thermal burn [Recovering/Resolving]
  - Myringitis [Unknown]
  - Tinea cruris [Unknown]
  - Cataract [Not Recovered/Not Resolved]
  - Joint injury [Unknown]
  - Abdominal pain [Recovered/Resolved]
  - Erectile dysfunction [Unknown]
  - Onychomycosis [Unknown]
  - Presyncope [Unknown]
  - Gynaecomastia [Unknown]
  - Furuncle [Recovering/Resolving]
  - Tinea pedis [Unknown]
  - Obstructive airways disorder [Unknown]
  - Cholesteatoma [Unknown]
  - Nausea [Recovered/Resolved]
  - Gait disturbance [Unknown]
  - Bursitis [Unknown]
  - Abnormal loss of weight [Unknown]
  - Hypertonic bladder [Unknown]
  - Loss of personal independence in daily activities [Unknown]
  - Asthenia [Unknown]
  - Dermatitis [Unknown]
  - Left ventricular hypertrophy [Unknown]
  - Sinusitis [Unknown]
  - Angioedema [Unknown]
  - Muscle strain [Unknown]
  - Ligament sprain [Unknown]
  - Adverse drug reaction [Unknown]
  - Headache [Unknown]
  - Cough [Unknown]
  - Otitis externa [Unknown]
  - Chest pain [Unknown]
  - Otitis media [Unknown]
  - Osteoporosis [Unknown]
  - Cellulitis [Recovering/Resolving]
  - Pneumonia [Unknown]
  - Vomiting [Recovered/Resolved]
  - Vertigo [Unknown]
  - Tachycardia [Unknown]
  - Gout [Unknown]
  - Diastolic dysfunction [Unknown]

NARRATIVE: CASE EVENT DATE: 20101024
